FAERS Safety Report 9829260 (Version 2)
Quarter: 2014Q1

REPORT INFORMATION
  Report Type: Report from Study
  Country: DE (occurrence: DE)
  Receive Date: 20140120
  Receipt Date: 20140131
  Transmission Date: 20141002
  Serious: Yes (Hospitalization)
  Sender: FDA-Public Use
  Company Number: DE-ROCHE-1335144

PATIENT
  Sex: Male

DRUGS (9)
  1. RANIBIZUMAB [Suspect]
     Indication: VISUAL IMPAIRMENT
     Route: 050
     Dates: start: 20120710
  2. RANIBIZUMAB [Suspect]
     Indication: DIABETIC RETINAL OEDEMA
     Route: 050
     Dates: start: 20120807
  3. RANIBIZUMAB [Suspect]
     Route: 050
     Dates: start: 20120904
  4. RANIBIZUMAB [Suspect]
     Route: 050
     Dates: start: 20121031
  5. RANIBIZUMAB [Suspect]
     Route: 050
     Dates: start: 20121212
  6. RANIBIZUMAB [Suspect]
     Route: 050
     Dates: start: 20130109
  7. RANIBIZUMAB [Suspect]
     Route: 050
     Dates: start: 20130219
  8. RANIBIZUMAB [Suspect]
     Route: 050
     Dates: start: 20130330
  9. KETOROLAC [Concomitant]
     Route: 065
     Dates: start: 20120712

REACTIONS (1)
  - Spinal cord haemorrhage [Unknown]
